FAERS Safety Report 18425446 (Version 3)
Quarter: 2020Q4

REPORT INFORMATION
  Report Type: Spontaneous
  Country: DE (occurrence: DE)
  Receive Date: 20201026
  Receipt Date: 20201211
  Transmission Date: 20210114
  Serious: Yes (Hospitalization, Other)
  Sender: FDA-Public Use
  Company Number: DE-AUROBINDO-AUR-APL-2020-053971

PATIENT
  Age: 20 Year
  Sex: Female
  Weight: 63.2 kg

DRUGS (16)
  1. AMOXICILLIN SODIUM;CLAVULANIC ACID [Concomitant]
     Active Substance: AMOXICILLIN\CLAVULANIC ACID
     Indication: TUBERCULOSIS
  2. AMIKACIN. [Concomitant]
     Active Substance: AMIKACIN
     Indication: TUBERCULOSIS
  3. CLOFAZIMINE [Concomitant]
     Active Substance: CLOFAZIMINE
     Indication: TUBERCULOSIS
     Dosage: UNK
     Route: 065
     Dates: start: 2018
  4. AMINOSALICYLIC ACID [Concomitant]
     Active Substance: AMINOSALICYLIC ACID
     Indication: TUBERCULOSIS
  5. AMOXICILLIN SODIUM;CLAVULANIC ACID [Concomitant]
     Active Substance: AMOXICILLIN\CLAVULANIC ACID
     Indication: PULMONARY TUBERCULOSIS
     Dosage: UNK
     Route: 065
     Dates: start: 2018
  6. BEDAQUILINE [Concomitant]
     Active Substance: BEDAQUILINE
     Indication: TUBERCULOSIS
  7. TERIZIDONE [Concomitant]
     Active Substance: TERIZIDONE
     Indication: PULMONARY TUBERCULOSIS
     Dosage: UNK
     Route: 065
     Dates: start: 2018
  8. MEROPENEM. [Concomitant]
     Active Substance: MEROPENEM
     Indication: TUBERCULOSIS
     Dosage: UNK
     Route: 065
     Dates: start: 2018
  9. AMINOSALICYLIC ACID [Concomitant]
     Active Substance: AMINOSALICYLIC ACID
     Indication: PULMONARY TUBERCULOSIS
     Dosage: UNK
     Route: 048
     Dates: start: 2018
  10. MEROPENEM. [Concomitant]
     Active Substance: MEROPENEM
     Indication: PULMONARY TUBERCULOSIS
  11. AMIKACIN. [Concomitant]
     Active Substance: AMIKACIN
     Indication: PULMONARY TUBERCULOSIS
     Dosage: 1000 MILLIGRAM, ONCE A DAY(1-0-0 )
     Route: 042
     Dates: start: 20180625
  12. LINEZOLID. [Suspect]
     Active Substance: LINEZOLID
     Indication: PULMONARY TUBERCULOSIS
     Dosage: 600 MILLIGRAM, TWO TIMES A DAY(1-0-1 )
     Route: 042
     Dates: start: 20180625, end: 20180919
  13. TERIZIDONE [Concomitant]
     Active Substance: TERIZIDONE
     Indication: TUBERCULOSIS
  14. CLOFAZIMINE [Concomitant]
     Active Substance: CLOFAZIMINE
     Indication: PULMONARY TUBERCULOSIS
  15. LINEZOLID. [Suspect]
     Active Substance: LINEZOLID
     Indication: TUBERCULOSIS
  16. BEDAQUILINE [Concomitant]
     Active Substance: BEDAQUILINE
     Indication: PULMONARY TUBERCULOSIS
     Dosage: UNK
     Route: 065
     Dates: start: 2018

REACTIONS (3)
  - Myelosuppression [Recovered/Resolved]
  - Polyneuropathy [Recovered/Resolved]
  - Maternal exposure during pregnancy [Recovered/Resolved]

NARRATIVE: CASE EVENT DATE: 2018
